FAERS Safety Report 8800552 (Version 1)
Quarter: 2012Q4

REPORT INFORMATION
  Report Type: 
  Country: NZ (occurrence: NZ)
  Receive Date: 20120921
  Receipt Date: 20120921
  Transmission Date: 20130627
  Serious: Yes (Hospitalization)
  Sender: FDA-Public Use
  Company Number: NZ-ASTRAZENECA-2012SE71109

PATIENT
  Sex: Male

DRUGS (2)
  1. BRILINTA [Suspect]
     Route: 048
  2. WARFARIN [Concomitant]

REACTIONS (3)
  - Staphylococcal infection [Unknown]
  - Coagulopathy [Unknown]
  - Malaise [Unknown]
